FAERS Safety Report 9338795 (Version 1)
Quarter: 2013Q2

REPORT INFORMATION
  Report Type: Spontaneous
  Country: US (occurrence: None)
  Receive Date: 20130605
  Receipt Date: 20130605
  Transmission Date: 20140414
  Serious: Yes (Other)
  Sender: FDA-Public Use
  Company Number: None

PATIENT
  Age: 37 Year
  Sex: Female
  Weight: 79.83 kg

DRUGS (1)
  1. DEPOMEDROL [Suspect]
     Indication: DERMATITIS ALLERGIC
     Dates: start: 20130218, end: 20130218

REACTIONS (3)
  - Injection site bruising [None]
  - Injection site nodule [None]
  - Injection site pain [None]
